FAERS Safety Report 23089095 (Version 1)
Quarter: 2023Q4

REPORT INFORMATION
  Report Type: Report from Study
  Country: US (occurrence: US)
  Receive Date: 20231020
  Receipt Date: 20231020
  Transmission Date: 20240109
  Serious: Yes (Hospitalization, Other)
  Sender: FDA-Public Use
  Company Number: US-MYLANLABS-2023M1041754

PATIENT
  Sex: Female

DRUGS (1)
  1. LYRICA [Suspect]
     Active Substance: PREGABALIN
     Indication: Neuralgia
     Dosage: 50 MILLIGRAM, QID, (TAKE 1 CAPSULE BY MOUTH 4 TIMES A DAY)
     Route: 048

REACTIONS (4)
  - Hospitalisation [Unknown]
  - Seizure [Unknown]
  - Drug intolerance [Unknown]
  - Off label use [Unknown]
